FAERS Safety Report 16394743 (Version 1)
Quarter: 2019Q3

REPORT INFORMATION
  Report Type: Spontaneous
  Country: US (occurrence: US)
  Receive Date: 20190604
  Receipt Date: 20190604
  Transmission Date: 20191004
  Serious: Yes (Life-Threatening, Hospitalization)
  Sender: FDA-Public Use
  Company Number: None

PATIENT
  Age: 14 Year
  Sex: Male
  Weight: 41.8 kg

DRUGS (2)
  1. NIVOLUMAB [Concomitant]
     Active Substance: NIVOLUMAB
     Dates: start: 20190422, end: 20190422
  2. YERVOY [Suspect]
     Active Substance: IPILIMUMAB
     Indication: ABDOMINAL NEOPLASM
     Dosage: ?          OTHER FREQUENCY:ONCE;?
     Route: 042
     Dates: start: 20190422, end: 20190422

REACTIONS (8)
  - Stomach mass [None]
  - Upper gastrointestinal haemorrhage [None]
  - Gastritis [None]
  - Haematemesis [None]
  - Small intestinal obstruction [None]
  - Tumour obstruction [None]
  - Portal vein thrombosis [None]
  - Large intestinal obstruction [None]

NARRATIVE: CASE EVENT DATE: 20190513
